FAERS Safety Report 19182686 (Version 7)
Quarter: 2022Q1

REPORT INFORMATION
  Report Type: Report from Study
  Country: US (occurrence: US)
  Receive Date: 20210427
  Receipt Date: 20220222
  Transmission Date: 20220423
  Serious: Yes (Other)
  Sender: FDA-Public Use
  Company Number: US-TAKEDA-2021TUS026263

PATIENT
  Age: 76 Year
  Sex: Female
  Weight: 46 kg

DRUGS (8)
  1. BRIGATINIB [Suspect]
     Active Substance: BRIGATINIB
     Indication: Lung squamous cell carcinoma metastatic
     Dosage: 90 MILLIGRAM
     Route: 065
     Dates: start: 20210420
  2. BRIGATINIB [Suspect]
     Active Substance: BRIGATINIB
     Indication: Lung neoplasm malignant
     Dosage: 180 MILLIGRAM
     Route: 065
     Dates: start: 20210427
  3. BRIGATINIB [Suspect]
     Active Substance: BRIGATINIB
     Indication: Osteoporosis
     Dosage: 180 MILLIGRAM, QD
     Route: 048
     Dates: start: 20210511, end: 20210614
  4. BRIGATINIB [Suspect]
     Active Substance: BRIGATINIB
     Indication: Lung cancer metastatic
     Dosage: 120 MILLIGRAM
     Route: 065
     Dates: start: 20210511
  5. BRIGATINIB [Suspect]
     Active Substance: BRIGATINIB
     Dosage: 90 MILLIGRAM
     Route: 065
     Dates: start: 20210608
  6. COLACE [Concomitant]
     Active Substance: DOCUSATE SODIUM
     Indication: Diarrhoea
     Dosage: UNK
     Route: 065
  7. IMODIUM [Concomitant]
     Active Substance: LOPERAMIDE HYDROCHLORIDE
     Indication: Constipation
     Dosage: UNK
     Route: 065
  8. ZOFRAN [Concomitant]
     Active Substance: ONDANSETRON HYDROCHLORIDE
     Indication: Nausea
     Dosage: UNK
     Route: 065

REACTIONS (15)
  - Lung cancer metastatic [Unknown]
  - Nasal congestion [Not Recovered/Not Resolved]
  - Retching [Unknown]
  - Productive cough [Unknown]
  - Malaise [Unknown]
  - Drug intolerance [Unknown]
  - Chest pain [Not Recovered/Not Resolved]
  - Weight decreased [Recovered/Resolved]
  - Vomiting [Recovering/Resolving]
  - Abdominal distension [Recovering/Resolving]
  - Nausea [Recovering/Resolving]
  - Dyspepsia [Recovered/Resolved]
  - Rash macular [Recovering/Resolving]
  - Diarrhoea [Unknown]
  - Off label use [Unknown]

NARRATIVE: CASE EVENT DATE: 20210426
